FAERS Safety Report 4344434-2 (Version None)
Quarter: 2004Q2

REPORT INFORMATION
  Report Type: 
  Country: None (occurrence: None)
  Receive Date: 20040419
  Receipt Date: 20040408
  Transmission Date: 20050107
  Serious: Yes (Hospitalization, Disabling, Congenital Anomaly)
  Sender: FDA-Public Use
  Company Number: 04P-056-0254091-00

PATIENT
  Age: 1 Day
  Sex: Male

DRUGS (1)
  1. DEPAKINE CHRONO TABLETS (SODIUM VALPROATE) (SODIUM VALPROATE) [Suspect]
     Indication: DRUG EXPOSURE DURING PREGNANCY

REACTIONS (4)
  - COLOBOMA [None]
  - HYPOTONIA NEONATAL [None]
  - MATERNAL DRUGS AFFECTING FOETUS [None]
  - WEIGHT DECREASED [None]
